FAERS Safety Report 9486745 (Version 1)
Quarter: 2013Q3

REPORT INFORMATION
  Report Type: Spontaneous
  Country: US (occurrence: US)
  Receive Date: 20130829
  Receipt Date: 20130829
  Transmission Date: 20140515
  Serious: No
  Sender: FDA-Public Use
  Company Number: US-BRISTOL-MYERS SQUIBB COMPANY-19051614

PATIENT
  Age: 61 Year
  Sex: Female
  Weight: 80.72 kg

DRUGS (3)
  1. KOMBIGLYZE XR [Suspect]
     Dosage: 1 DF=2.5/1000MG?CHANGED TO 5/1000MG IN APR2013
     Dates: start: 20121212
  2. LIPITOR [Concomitant]
  3. BENICAR [Concomitant]

REACTIONS (3)
  - Weight decreased [Unknown]
  - Gastrooesophageal reflux disease [Unknown]
  - Abdominal pain upper [Recovered/Resolved]
